FAERS Safety Report 7761125-6 (Version None)
Quarter: 2011Q3

REPORT INFORMATION
  Report Type: 
  Country: None (occurrence: None)
  Receive Date: 20110920
  Receipt Date: 20101026
  Transmission Date: 20111222
  Serious: No
  Sender: FDA-Public Use
  Company Number: US-BAYER-201039317NA

PATIENT
  Sex: Female

DRUGS (1)
  1. MIRENA [Suspect]
     Indication: CONTRACEPTION
     Dosage: 20 MCG/24HR, CONT
     Route: 015
     Dates: start: 20100730, end: 20101026

REACTIONS (5)
  - DEVICE EXPULSION [None]
  - NAUSEA [None]
  - FATIGUE [None]
  - VOMITING [None]
  - MEDICAL DEVICE COMPLICATION [None]
